FAERS Safety Report 22222820 (Version 1)
Quarter: 2023Q2

REPORT INFORMATION
  Report Type: Spontaneous
  Country: GB (occurrence: GB)
  Receive Date: 20230418
  Receipt Date: 20230418
  Transmission Date: 20230722
  Serious: Yes (Disabling, Other)
  Sender: FDA-Public Use
  Company Number: GB-MYLANLABS-2023M1041504

PATIENT
  Age: 6 Year
  Sex: Female

DRUGS (2)
  1. CYSTEAMINE [Suspect]
     Active Substance: CYSTEAMINE
     Indication: Cystinosis
     Dosage: 2 GTT DROPS, QID (1 DROP TO EACH EYE, 4 TIMES A DAY), STOP: APR-2022
     Dates: start: 20220419
  2. CYSTEAMINE [Suspect]
     Active Substance: CYSTEAMINE
     Dosage: 2 GTT DROPS, QID (1 DROP TO EACH EYE, 4 TIMES A DAY)
     Dates: start: 202301

REACTIONS (2)
  - Eye pain [Recovered/Resolved]
  - Swelling of eyelid [Not Recovered/Not Resolved]

NARRATIVE: CASE EVENT DATE: 20220419
